FAERS Safety Report 9924479 (Version 1)
Quarter: 2014Q1

REPORT INFORMATION
  Report Type: Spontaneous
  Country: FR (occurrence: FR)
  Receive Date: 20140226
  Receipt Date: 20140226
  Transmission Date: 20141002
  Serious: Yes (Other)
  Sender: FDA-Public Use
  Company Number: FR-ASTELLAS-2014EU001606

PATIENT
  Sex: Female
  Weight: 72 kg

DRUGS (3)
  1. PROGRAF [Suspect]
     Dosage: 12 MG, UNKNOWN/D
     Route: 065
  2. CELLCEPT                           /01275102/ [Concomitant]
     Dosage: 2000 MG, UNKNOWN/D
     Route: 065
  3. CORTICOSTEROID NOS [Concomitant]
     Dosage: 30 MG, UNKNOWN/D
     Route: 065

REACTIONS (1)
  - Renal transplant [Unknown]
